FAERS Safety Report 21783111 (Version 1)
Quarter: 2022Q4

REPORT INFORMATION
  Report Type: Spontaneous
  Country: US (occurrence: None)
  Receive Date: 20221222
  Receipt Date: 20221222
  Transmission Date: 20230113
  Serious: Yes (Hospitalization)
  Sender: FDA-Public Use
  Company Number: None

PATIENT
  Sex: Female

DRUGS (3)
  1. TADALAFIL [Suspect]
     Active Substance: TADALAFIL
     Indication: Pulmonary arterial hypertension
     Dosage: FREQUENCY : DAILY;?
     Route: 048
     Dates: start: 20221122
  2. AMBRISENTAN [Suspect]
     Active Substance: AMBRISENTAN
     Indication: Pulmonary arterial hypertension
     Dosage: FREQUENCY : DAILY;?
     Route: 048
     Dates: start: 20221130
  3. REMODULIN [Suspect]
     Active Substance: TREPROSTINIL

REACTIONS (8)
  - Headache [None]
  - Pain in extremity [None]
  - Diarrhoea [None]
  - Oxygen consumption increased [None]
  - Headache [None]
  - Palpitations [None]
  - Laboratory test abnormal [None]
  - Adverse drug reaction [None]
